FAERS Safety Report 5430371-9 (Version None)
Quarter: 2007Q3

REPORT INFORMATION
  Report Type: 
  Country: None (occurrence: None)
  Receive Date: 20070830
  Receipt Date: 20070821
  Transmission Date: 20080115
  Serious: Yes (Other)
  Sender: FDA-Public Use
  Company Number: CH-JNJFOC-20070605219

PATIENT
  Age: 2 Decade
  Sex: Male

DRUGS (4)
  1. CONCERTA [Suspect]
     Route: 048
  2. CONCERTA [Suspect]
     Route: 048
  3. CONCERTA [Suspect]
     Indication: ATTENTION DEFICIT/HYPERACTIVITY DISORDER
     Route: 048
  4. VALPROATE SODIUM [Concomitant]
     Indication: EPILEPSY

REACTIONS (4)
  - ANXIETY [None]
  - GASTROINTESTINAL PAIN [None]
  - HALLUCINATION, VISUAL [None]
  - PSYCHOTIC DISORDER [None]
